FAERS Safety Report 14201866 (Version 3)
Quarter: 2018Q1

REPORT INFORMATION
  Report Type: Report from Study
  Country: US (occurrence: US)
  Receive Date: 20171117
  Receipt Date: 20180324
  Transmission Date: 20180508
  Serious: Yes (Hospitalization, Other)
  Sender: FDA-Public Use
  Company Number: PHHO2017US003735

PATIENT
  Age: 31 Year
  Sex: Female
  Weight: 59.2 kg

DRUGS (25)
  1. TOBI [Suspect]
     Active Substance: TOBRAMYCIN
     Dosage: 300 MG, BID (QOM)
     Route: 055
     Dates: start: 20161201, end: 20161221
  2. TOBI [Suspect]
     Active Substance: TOBRAMYCIN
     Dosage: 300 MG, BID (QOM)
     Route: 055
     Dates: start: 20170203, end: 20170222
  3. TOBI [Suspect]
     Active Substance: TOBRAMYCIN
     Dosage: 300 MG, BID (QOM)
     Route: 055
     Dates: start: 20170403, end: 20170501
  4. TOBI [Suspect]
     Active Substance: TOBRAMYCIN
     Dosage: 300 MG, BID (QMO)
     Route: 055
     Dates: start: 20170830, end: 20170915
  5. CAYSTON [Suspect]
     Active Substance: AZTREONAM
     Indication: PRODUCT USED FOR UNKNOWN INDICATION
     Dosage: 75 MG, TID (QOM)
     Route: 065
     Dates: start: 20150406
  6. CAYSTON [Suspect]
     Active Substance: AZTREONAM
     Dosage: 75 MG, TID (QOM)
     Route: 065
     Dates: start: 20170304, end: 20170401
  7. CAYSTON [Suspect]
     Active Substance: AZTREONAM
     Dosage: 75 MG, TID (QOM)
     Route: 065
     Dates: start: 20170502, end: 20170525
  8. TOBI [Suspect]
     Active Substance: TOBRAMYCIN
     Indication: PSEUDOMONAS INFECTION
     Dosage: 300 MG, BID (QOM)
     Route: 055
     Dates: start: 20161001, end: 20161030
  9. CAYSTON [Suspect]
     Active Substance: AZTREONAM
     Dosage: 75 MG, TID (QOM)
     Route: 065
     Dates: start: 20171003, end: 20171111
  10. NOVOLOG [Concomitant]
     Active Substance: INSULIN ASPART
     Indication: CYSTIC FIBROSIS RELATED DIABETES
     Dosage: 10 U, PRN
     Route: 058
     Dates: start: 20160628
  11. CAYSTON [Suspect]
     Active Substance: AZTREONAM
     Dosage: 75 OT, TID (QOM)
     Route: 065
     Dates: start: 20161101, end: 20161129
  12. SODIUM CHLORIDE. [Concomitant]
     Active Substance: SODIUM CHLORIDE
     Indication: OBSTRUCTIVE AIRWAYS DISORDER
     Dosage: 4 ML, BID
     Route: 065
     Dates: start: 20140502
  13. LANTUS [Concomitant]
     Active Substance: INSULIN GLARGINE
     Indication: CYSTIC FIBROSIS RELATED DIABETES
     Dosage: 9 U, QD
     Route: 058
     Dates: start: 20160628
  14. SINGULAIR [Concomitant]
     Active Substance: MONTELUKAST SODIUM
     Indication: SINUSITIS
     Dosage: 10 MG, QD
     Route: 065
     Dates: start: 20150629
  15. TOBI [Suspect]
     Active Substance: TOBRAMYCIN
     Dosage: 300 MG, BID (QMO)
     Route: 055
     Dates: start: 20170623, end: 20170720
  16. ALBUTEROL HFA [Concomitant]
     Active Substance: ALBUTEROL SULFATE
     Indication: OBSTRUCTIVE AIRWAYS DISORDER
     Dosage: 2 DF, PRN
     Route: 065
     Dates: start: 20111101
  17. TOBI [Suspect]
     Active Substance: TOBRAMYCIN
     Indication: CYSTIC FIBROSIS
     Dosage: 300 MG, BID (QOM)
     Route: 055
     Dates: start: 20110314
  18. FLUTICASONE. [Concomitant]
     Active Substance: FLUTICASONE
     Indication: SINUSITIS
     Dosage: 50 UG, QD
     Route: 045
     Dates: start: 20111207
  19. TOBI [Suspect]
     Active Substance: TOBRAMYCIN
     Dosage: 300 MG, BID (QMO)
     Route: 055
     Dates: start: 20170720, end: 20170819
  20. CAYSTON [Suspect]
     Active Substance: AZTREONAM
     Dosage: 75 MG, TID (QOM)
     Route: 065
     Dates: start: 20170105, end: 20170202
  21. TOBI [Suspect]
     Active Substance: TOBRAMYCIN
     Dosage: 300 MG, BID (QMO)
     Route: 055
     Dates: start: 20171102, end: 20171106
  22. CAYSTON [Suspect]
     Active Substance: AZTREONAM
     Dosage: 75 OT, TID (QOM)
     Route: 065
     Dates: start: 20160901, end: 20160930
  23. AZITHROMYCIN ANHYDROUS. [Concomitant]
     Active Substance: AZITHROMYCIN ANHYDROUS
     Indication: INFLAMMATION
     Dosage: 500 MG, (TUESDAY, THURSDAY AND SATURDAY)
     Route: 065
     Dates: start: 20160114
  24. PULMOZYME [Concomitant]
     Active Substance: DORNASE ALFA
     Indication: OBSTRUCTIVE AIRWAYS DISORDER
     Dosage: 2.5 MG, QD
     Route: 065
     Dates: start: 20160216
  25. ACTIGALL [Concomitant]
     Active Substance: URSODIOL
     Indication: BLOOD ALKALINE PHOSPHATASE INCREASED
     Dosage: 300 MG, BID
     Route: 048
     Dates: start: 19950605

REACTIONS (6)
  - Haemoptysis [Recovered/Resolved]
  - Infective pulmonary exacerbation of cystic fibrosis [Recovered/Resolved]
  - Infective pulmonary exacerbation of cystic fibrosis [Recovered/Resolved]
  - Chest pain [Unknown]
  - Infective pulmonary exacerbation of cystic fibrosis [Recovered/Resolved]
  - Forced expiratory volume decreased [Unknown]

NARRATIVE: CASE EVENT DATE: 20161221
